FAERS Safety Report 7301320-3 (Version None)
Quarter: 2011Q1

REPORT INFORMATION
  Report Type: 
  Country: None (occurrence: None)
  Receive Date: 20110218
  Receipt Date: 20110215
  Transmission Date: 20110831
  Serious: Yes (Other)
  Sender: FDA-Public Use
  Company Number: AU-PFIZER INC-2011034839

PATIENT

DRUGS (1)
  1. LIPITOR [Suspect]

REACTIONS (2)
  - ABDOMINAL PAIN [None]
  - GASTRIC HAEMORRHAGE [None]
